FAERS Safety Report 9444722 (Version 1)
Quarter: 2013Q3

REPORT INFORMATION
  Report Type: Spontaneous
  Country: AU (occurrence: AU)
  Receive Date: 20130807
  Receipt Date: 20130807
  Transmission Date: 20140515
  Serious: Yes (Hospitalization)
  Sender: FDA-Public Use
  Company Number: AU-HORIZON-PRE-0085-2013

PATIENT
  Sex: Male

DRUGS (4)
  1. PREDNISONE [Suspect]
     Indication: ARTHRALGIA
     Route: 048
  2. METHOTREXATE [Concomitant]
  3. ARAVA [Concomitant]
  4. NUROFEN [Concomitant]

REACTIONS (1)
  - Oesophageal rupture [Recovered/Resolved]
